FAERS Safety Report 7939508-0 (Version None)
Quarter: 2011Q4

REPORT INFORMATION
  Report Type: 
  Country: None (occurrence: None)
  Receive Date: 20111125
  Receipt Date: 20111121
  Transmission Date: 20120403
  Serious: Yes (Other)
  Sender: FDA-Public Use
  Company Number: US-AMGEN-USASP2011047839

PATIENT
  Age: 65 Year
  Sex: Female

DRUGS (4)
  1. LEVOXYL [Concomitant]
  2. QUINAPRIL [Concomitant]
  3. AMBIEN [Concomitant]
  4. PROLIA [Suspect]
     Indication: OSTEOPOROSIS POSTMENOPAUSAL
     Dosage: UNK UNK, Q6MO
     Dates: start: 20110511

REACTIONS (1)
  - WHITE BLOOD CELL COUNT DECREASED [None]
